FAERS Safety Report 12121486 (Version 1)
Quarter: 2016Q1

REPORT INFORMATION
  Report Type: Spontaneous
  Country: US (occurrence: US)
  Receive Date: 20160226
  Receipt Date: 20160226
  Transmission Date: 20160526
  Serious: No
  Sender: FDA-Public Use
  Company Number: US-ALLERGAN-1305753US

PATIENT
  Age: 78 Year
  Sex: Female

DRUGS (2)
  1. REFRESH TEARS [Suspect]
     Active Substance: CARBOXYMETHYLCELLULOSE SODIUM
     Indication: DRY EYE
     Dosage: 4-5 TIMES DAILY
     Route: 047
  2. REFRESH OPTIVE [Suspect]
     Active Substance: CARBOXYMETHYLCELLULOSE SODIUM\GLYCERIN
     Indication: DRY EYE
     Dosage: 4-5 TIMES DAILY
     Route: 047

REACTIONS (11)
  - Eye discharge [Recovering/Resolving]
  - Asthenopia [Recovering/Resolving]
  - Sticky skin [Recovering/Resolving]
  - Erythema of eyelid [Recovering/Resolving]
  - Eye irritation [Recovering/Resolving]
  - Ocular hyperaemia [Recovering/Resolving]
  - Scleral hyperaemia [Recovering/Resolving]
  - Glassy eyes [Recovering/Resolving]
  - Abnormal sensation in eye [Recovering/Resolving]
  - Eyelid oedema [Recovering/Resolving]
  - Visual acuity reduced [Recovering/Resolving]
